FAERS Safety Report 7365462-9 (Version None)
Quarter: 2011Q1

REPORT INFORMATION
  Report Type: 
  Country: None (occurrence: None)
  Receive Date: 20110316
  Receipt Date: 20110316
  Transmission Date: 20110831
  Serious: Yes (Life-Threatening, Hospitalization, Disabling)
  Sender: FDA-Public Use
  Company Number: None

PATIENT
  Age: 63 Year
  Sex: Male
  Weight: 73.9363 kg

DRUGS (1)
  1. FOSAMAX [Suspect]
     Dosage: 70MG WEEKLY
     Dates: start: 20060101, end: 20100101

REACTIONS (1)
  - RENAL FAILURE [None]
